FAERS Safety Report 8677650 (Version 6)
Quarter: 2013Q1

REPORT INFORMATION
  Report Type: Spontaneous
  Country: US (occurrence: None)
  Receive Date: 20120705
  Receipt Date: 20130307
  Transmission Date: 20140127
  Serious: Yes (Other)
  Sender: FDA-Public Use
  Company Number: 2010004934

PATIENT
  Age: 70 Year
  Sex: Female

DRUGS (27)
  1. TARCEVA [Suspect]
     Indication: LUNG CARCINOMA CELL TYPE UNSPECIFIED STAGE 0
     Dosage: 100 MG, UID/QD, ORAL
     Route: 048
     Dates: start: 20101103, end: 20100411
  2. XANAX [Suspect]
     Indication: PRODUCT USED FOR UNKNOWN INDICATION
     Dosage: 0.25 MG, TID/PRN, ORAL
     Route: 048
     Dates: start: 20120306
  3. BACITRACIN [Concomitant]
  4. CELEXA [Concomitant]
  5. COMPAZINE [Concomitant]
  6. MARY MAGIC MOUTH WASH (MOUTHWASH) [Concomitant]
  7. TENORMIN [Concomitant]
  8. MACRODANTIN [Concomitant]
  9. PRILOSEC [Concomitant]
  10. VENTOLIN HFA (SALBUTAMOL SULFATE) [Concomitant]
  11. MAG-OX (MAGNESIUM OXYDE) [Concomitant]
  12. MICRO-K [Concomitant]
  13. AQUAPHOR (XIPAMIDE) [Concomitant]
  14. BOOST (BIOTIN, CARBOHYDRATES NOS, FATS NOS, MINERALS NOS, POTASSIUM, PROTEINS NOS, SODIUIM, VITAMINS [Concomitant]
  15. BROVANA (ARFORMOTEROL TARTRATE) [Concomitant]
  16. K-Y JELLY (GLYCEROL, HYETELLOSE) [Concomitant]
  17. NASAL SPRAY II (XYLOMETAZOLINE HYDROCHLORIDE) [Concomitant]
  18. TRIAMCINOLONE (TRIAMCINOLONE) [Concomitant]
  19. TRIPLE CARE/07291001/(NYSTATIN, PARAFFIN, ZINC OXIDE) [Concomitant]
  20. BIOFREEZE /00482701/(MENTHOL) [Concomitant]
  21. ESOPHAGITIS MIXTURE [Concomitant]
  22. ANUSOL HC (HYDROCORTISONE ACETATE) [Concomitant]
  23. ESTRACE (ESTRADIOL) [Concomitant]
  24. TESSALON (BENZONATATE) [Concomitant]
  25. BENADRYL/00000402/ (DIPHENHYDRAMINE HYDROCHLORIDE) [Concomitant]
  26. ROBITUSSIN /00048001/ (GUAIFENESIN) [Concomitant]
  27. CENTRUM SILVER /07431401/ (ASCORBIC ACID, CALCIUM, MINERALS NOS, RETINOL, TOCOPHERY ACETATE, VITAMIN B NOS, VITAMINS NOS, ZINC) [Concomitant]

REACTIONS (11)
  - Incorrect dose administered [None]
  - Iron deficiency anaemia [None]
  - Somnolence [None]
  - Diarrhoea [None]
  - Stomatitis [None]
  - Glomerular filtration rate decreased [None]
  - Cystitis interstitial [None]
  - Cystocele [None]
  - Urinary tract infection [None]
  - Haemoptysis [None]
  - Bronchial secretion retention [None]
